FAERS Safety Report 5498553-8 (Version None)
Quarter: 2007Q4

REPORT INFORMATION
  Report Type: 
  Country: None (occurrence: None)
  Receive Date: 20071026
  Receipt Date: 20071017
  Transmission Date: 20080405
  Serious: Yes (Hospitalization)
  Sender: FDA-Public Use
  Company Number: PHBS2007IT17446

PATIENT
  Age: 32 Year
  Sex: Female

DRUGS (2)
  1. METOPROLOL TARTRATE [Suspect]
     Indication: HYPERTROPHIC CARDIOMYOPATHY
     Dosage: 50 MG, BID
  2. METOPROLOL TARTRATE [Suspect]
     Dosage: 100 MG, BID

REACTIONS (7)
  - DYSPNOEA [None]
  - EJECTION FRACTION DECREASED [None]
  - EOSINOPHIL CATIONIC PROTEIN INCREASED [None]
  - EOSINOPHIL COUNT INCREASED [None]
  - MYOCARDITIS [None]
  - PALPITATIONS [None]
  - VENTRICULAR TACHYCARDIA [None]
